FAERS Safety Report 8632140 (Version 3)
Quarter: 2014Q1

REPORT INFORMATION
  Report Type: Spontaneous
  Country: US (occurrence: US)
  Receive Date: 20120625
  Receipt Date: 20140113
  Transmission Date: 20141002
  Serious: Yes (Hospitalization)
  Sender: FDA-Public Use
  Company Number: US-BAYER-2012-061087

PATIENT
  Age: 19 Year
  Sex: Female

DRUGS (8)
  1. YAZ [Suspect]
     Indication: ACNE
     Dosage: UNK
     Dates: start: 200806, end: 200908
  2. YAZ [Suspect]
     Indication: MENSTRUAL CYCLE MANAGEMENT
  3. VITAMIN C [Concomitant]
     Indication: ANALGESIC THERAPY
     Dosage: DAILY
  4. IBUPROFEN [Concomitant]
  5. MULTIVITAMIN [Concomitant]
     Dosage: DAILY
  6. ZOSYN [Concomitant]
     Dosage: 3.37 G, UNK
     Route: 042
  7. NORCO [Concomitant]
     Dosage: ONE TO TWO PILLS EVERY 4 HOURS P.R.N
  8. COLACE [Concomitant]
     Dosage: 100 MG, EVERY 12 HOURS
     Route: 048

REACTIONS (6)
  - Gallbladder injury [None]
  - Cholecystitis [None]
  - Pain [None]
  - Fear [None]
  - Injury [None]
  - Pain [None]
